FAERS Safety Report 5369578-8 (Version None)
Quarter: 2007Q2

REPORT INFORMATION
  Report Type: 
  Country: None (occurrence: None)
  Receive Date: 20070625
  Receipt Date: 20070613
  Transmission Date: 20071010
  Serious: Yes (Death)
  Sender: FDA-Public Use
  Company Number: US-PFIZER INC-2006079673

PATIENT
  Sex: Male
  Weight: 73.9 kg

DRUGS (15)
  1. SUTENT [Suspect]
     Indication: METASTATIC RENAL CELL CARCINOMA
     Route: 048
     Dates: start: 20060119, end: 20060215
  2. SUTENT [Suspect]
     Route: 048
     Dates: start: 20060320, end: 20060412
  3. SUTENT [Suspect]
     Route: 048
     Dates: start: 20060502, end: 20060529
  4. AMBIEN [Concomitant]
     Route: 048
  5. GLUCOTROL [Concomitant]
     Route: 048
     Dates: start: 20060502
  6. ALUMINIUM HYDROXIDE/DIPHENHYDRAMINE/MAGNESIUM HYDROXIDE/LIDOCAINE [Concomitant]
     Route: 048
     Dates: start: 20060210
  7. SODIUM BICARBONATE [Concomitant]
     Route: 048
     Dates: start: 20060309
  8. METOPROLOL SUCCINATE [Concomitant]
     Route: 048
     Dates: start: 20051216
  9. SIMVASTATIN [Concomitant]
     Route: 048
     Dates: start: 19870101
  10. VITAMIN CAP [Concomitant]
     Route: 048
     Dates: start: 20051216
  11. HYDROCODONE BITARTRATE [Concomitant]
     Route: 048
     Dates: start: 20050901
  12. MEGACE [Concomitant]
     Route: 048
     Dates: start: 20060124
  13. PROCHLORPERAZINE [Concomitant]
     Route: 048
     Dates: start: 20050901
  14. ARANESP [Concomitant]
     Route: 058
     Dates: start: 20051123
  15. TRIAMCINOLONE ACETONIDE [Concomitant]
     Route: 061
     Dates: start: 20060209

REACTIONS (1)
  - DEATH [None]
